FAERS Safety Report 4640588-9 (Version None)
Quarter: 2005Q2

REPORT INFORMATION
  Report Type: 
  Country: None (occurrence: None)
  Receive Date: 20050321
  Receipt Date: 20040420
  Transmission Date: 20051028
  Serious: Yes (Hospitalization, Disabling, Other)
  Sender: FDA-Public Use
  Company Number: 2004-04-1123

PATIENT
  Age: 49 Year
  Sex: Male
  Weight: 89.3586 kg

DRUGS (4)
  1. PEG-INTRON [Suspect]
     Indication: HEPATITIS C
     Dosage: 150 MCG QW SUBCUTANEOUS
     Route: 058
     Dates: start: 20040311, end: 20040406
  2. REBETOL [Suspect]
     Indication: HEPATITIS C
     Dosage: 1200 MG QD ORAL
     Route: 048
     Dates: start: 20040311, end: 20040406
  3. HYDROCODONE HCL [Concomitant]
  4. PAXIL [Concomitant]

REACTIONS (1)
  - RETINAL ARTERY THROMBOSIS [None]
